FAERS Safety Report 17764052 (Version 1)
Quarter: 2020Q2

REPORT INFORMATION
  Report Type: Spontaneous
  Country: FR (occurrence: FR)
  Receive Date: 20200511
  Receipt Date: 20200511
  Transmission Date: 20200714
  Serious: Yes (Hospitalization, Other)
  Sender: FDA-Public Use
  Company Number: FR-AUROBINDO-AUR-APL-2020-022214

PATIENT
  Age: 74 Year
  Sex: Male
  Weight: 66 kg

DRUGS (5)
  1. CANCIDAS [Suspect]
     Active Substance: CASPOFUNGIN ACETATE
     Indication: FEBRILE BONE MARROW APLASIA
     Dosage: 1 DOSAGE FORM, ONCE A DAY
     Route: 042
     Dates: start: 20200314, end: 20200326
  2. ACICLOVIR [Suspect]
     Active Substance: ACYCLOVIR
     Indication: FEBRILE BONE MARROW APLASIA
     Dosage: 750 MILLIGRAM, ONCE A DAY
     Route: 042
     Dates: start: 20200313, end: 20200330
  3. ROVAMYCINE [Suspect]
     Active Substance: SPIRAMYCIN
     Indication: FEBRILE BONE MARROW APLASIA
     Dosage: 1.5 MEGA-INTERNATIONAL UNIT, 3 TIMES A DAY
     Route: 042
     Dates: start: 20200319, end: 20200322
  4. METRONIDAZOLE. [Suspect]
     Active Substance: METRONIDAZOLE
     Indication: FEBRILE BONE MARROW APLASIA
     Dosage: 1500 MILLIGRAM, ONCE A DAY
     Route: 042
     Dates: start: 20200312, end: 20200323
  5. CEFTAZIDIME. [Suspect]
     Active Substance: CEFTAZIDIME
     Indication: FEBRILE BONE MARROW APLASIA
     Dosage: 4 GRAM, ONCE A DAY
     Route: 042
     Dates: start: 20200306, end: 20200330

REACTIONS (1)
  - Coma [Recovered/Resolved]

NARRATIVE: CASE EVENT DATE: 20200321
